FAERS Safety Report 14306557 (Version 1)
Quarter: 2017Q4

REPORT INFORMATION
  Report Type: Spontaneous
  Country: FR (occurrence: FR)
  Receive Date: 20171220
  Receipt Date: 20171220
  Transmission Date: 20180321
  Serious: Yes (Other)
  Sender: FDA-Public Use
  Company Number: FR-MERCK KGAA-2037445

PATIENT
  Age: 54 Year
  Sex: Female

DRUGS (1)
  1. NOVOTHYROX [Suspect]
     Active Substance: LEVOTHYROXINE SODIUM
     Indication: POST PROCEDURAL HYPOTHYROIDISM
     Dates: start: 20170604

REACTIONS (21)
  - Depression [None]
  - Overdose [None]
  - Increased appetite [None]
  - Gait disturbance [None]
  - Decreased interest [None]
  - Asthenia [None]
  - Loss of personal independence in daily activities [None]
  - Abnormal faeces [None]
  - Hot flush [None]
  - Feeling cold [None]
  - Arrhythmia [None]
  - Muscle spasms [None]
  - Disturbance in attention [None]
  - Headache [None]
  - Blood thyroid stimulating hormone decreased [None]
  - Insomnia [None]
  - Alopecia [None]
  - Weight increased [None]
  - Mood altered [None]
  - Arthralgia [None]
  - Impaired driving ability [None]

NARRATIVE: CASE EVENT DATE: 2017
